FAERS Safety Report 14301741 (Version 3)
Quarter: 2018Q1

REPORT INFORMATION
  Report Type: Spontaneous
  Country: AR (occurrence: AR)
  Receive Date: 20171219
  Receipt Date: 20180115
  Transmission Date: 20180509
  Serious: Yes (Hospitalization, Other)
  Sender: FDA-Public Use
  Company Number: AR-ALEXION PHARMACEUTICALS INC.-A201714097

PATIENT
  Age: 1 Year
  Sex: Female
  Weight: 6.72 kg

DRUGS (11)
  1. STRENSIQ [Suspect]
     Active Substance: ASFOTASE ALFA
     Indication: HYPOPHOSPHATASIA
     Dosage: 2 MG/KG, Q3W
     Route: 065
     Dates: start: 20170309
  2. PHENOBARBITAL. [Concomitant]
     Active Substance: PHENOBARBITAL
     Indication: PRODUCT USED FOR UNKNOWN INDICATION
     Dosage: 5 MG/KG, Q12H
     Route: 065
  3. ZINC SULFATE [Concomitant]
     Active Substance: ZINC SULFATE\ZINC SULFATE ANHYDROUS
     Indication: PRODUCT USED FOR UNKNOWN INDICATION
     Dosage: 6.5 ML, QD
     Route: 065
  4. FOLIC ACID. [Concomitant]
     Active Substance: FOLIC ACID
     Indication: PRODUCT USED FOR UNKNOWN INDICATION
     Dosage: 4 GTT, QD
     Route: 048
  5. LORAZEPAM. [Concomitant]
     Active Substance: LORAZEPAM
     Indication: PRODUCT USED FOR UNKNOWN INDICATION
     Dosage: 0.1 MG/KG, Q12H
     Route: 065
  6. STRENSIQ [Suspect]
     Active Substance: ASFOTASE ALFA
     Dosage: 2 MG/KG, UNK
     Route: 065
  7. CARBAMAZEPINE. [Concomitant]
     Active Substance: CARBAMAZEPINE
     Indication: PRODUCT USED FOR UNKNOWN INDICATION
     Dosage: 30 MG/KG, Q12H
     Route: 065
  8. LEVETIRACETAM. [Concomitant]
     Active Substance: LEVETIRACETAM
     Indication: PRODUCT USED FOR UNKNOWN INDICATION
     Dosage: 55 MG/KG, QD
     Route: 065
  9. DIPHENYLHYDANTOIN                  /00017401/ [Concomitant]
     Indication: PRODUCT USED FOR UNKNOWN INDICATION
     Dosage: 8 MG/KG, QD, EVERY 12 HOURS
     Route: 065
  10. FERROUS SULFATE. [Concomitant]
     Active Substance: FERROUS SULFATE
     Indication: PRODUCT USED FOR UNKNOWN INDICATION
     Dosage: 14 GTT, QD
     Route: 048
  11. LEVOTHYROXINE. [Concomitant]
     Active Substance: LEVOTHYROXINE
     Indication: PRODUCT USED FOR UNKNOWN INDICATION
     Dosage: 50 MCG, QD
     Route: 065

REACTIONS (5)
  - Urinary tract infection [Recovered/Resolved]
  - Seizure [Not Recovered/Not Resolved]
  - Aspartate aminotransferase increased [Unknown]
  - Pyrexia [Recovered/Resolved]
  - Seborrhoeic dermatitis [Unknown]

NARRATIVE: CASE EVENT DATE: 20171130
